FAERS Safety Report 20666839 (Version 2)
Quarter: 2022Q2

REPORT INFORMATION
  Report Type: Spontaneous
  Country: US (occurrence: US)
  Receive Date: 20220403
  Receipt Date: 20220510
  Transmission Date: 20220720
  Serious: No
  Sender: FDA-Public Use
  Company Number: US-JNJFOC-20220362093

PATIENT
  Age: 48 Year
  Sex: Male
  Weight: 83.990 kg

DRUGS (1)
  1. SIMPONI [Suspect]
     Active Substance: GOLIMUMAB
     Indication: Product used for unknown indication
     Route: 058

REACTIONS (5)
  - Scar [Unknown]
  - Needle issue [Unknown]
  - Accidental exposure to product [Unknown]
  - Pain [Unknown]
  - Product dose omission issue [Unknown]
